FAERS Safety Report 8126881 (Version 4)
Quarter: 2013Q2

REPORT INFORMATION
  Report Type: Report from Study
  Country: CA (occurrence: CA)
  Receive Date: 20110908
  Receipt Date: 20130429
  Transmission Date: 20140414
  Serious: Yes (Death, Other)
  Sender: FDA-Public Use
  Company Number: PHHY2011CA77824

PATIENT
  Sex: Female

DRUGS (2)
  1. ACLASTA [Suspect]
     Indication: OSTEOPOROSIS
     Dosage: UNK
     Route: 042
     Dates: start: 20100325
  2. ACLASTA [Suspect]
     Dosage: UNK
     Route: 042
     Dates: start: 20120627

REACTIONS (3)
  - Parkinson^s disease [Fatal]
  - Dementia [Fatal]
  - Gait disturbance [Fatal]
